FAERS Safety Report 8893918 (Version 2)
Quarter: 2012Q4

REPORT INFORMATION
  Report Type: 
  Country: JP (occurrence: JP)
  Receive Date: 20121108
  Receipt Date: 20121108
  Transmission Date: 20130627
  Serious: Yes (Other)
  Sender: FDA-Public Use
  Company Number: JP-JNJFOC-20121101902

PATIENT
  Age: 10 Year
  Sex: Male

DRUGS (5)
  1. DOXORUBICIN HYDROCHLORIDE (DOXIL) [Suspect]
     Indication: BONE SARCOMA
     Dosage: for 10 months
     Route: 042
  2. DOXORUBICIN [Suspect]
     Indication: BONE SARCOMA
     Dosage: for 10 months
     Route: 065
  3. RADIOTHERAPY [Suspect]
     Indication: THROMBOCYTOPENIA
     Dosage: 10Gy
     Route: 065
  4. METHOTREXATE [Concomitant]
     Indication: BONE SARCOMA
     Route: 065
  5. CISPLATIN [Concomitant]
     Indication: BONE SARCOMA
     Route: 042

REACTIONS (2)
  - Cardiac failure [Recovering/Resolving]
  - Off label use [Unknown]
